FAERS Safety Report 14088434 (Version 4)
Quarter: 2017Q4

REPORT INFORMATION
  Report Type: Spontaneous
  Country: US (occurrence: US)
  Receive Date: 20171013
  Receipt Date: 20171102
  Transmission Date: 20180321
  Serious: Yes (Hospitalization)
  Sender: FDA-Public Use
  Company Number: US-ACTELION-A-US2017-160801

PATIENT
  Age: 47 Year
  Sex: Male
  Weight: 81.63 kg

DRUGS (2)
  1. VELETRI [Suspect]
     Active Substance: EPOPROSTENOL
     Dosage: 18 NG/KG, PER MIN
     Route: 042
  2. VELETRI [Suspect]
     Active Substance: EPOPROSTENOL
     Indication: PULMONARY ARTERIAL HYPERTENSION
     Dosage: 17.2 NG/KG, PER MIN
     Route: 042

REACTIONS (4)
  - Sepsis [Unknown]
  - Device related infection [Unknown]
  - Pyrexia [Unknown]
  - Treatment noncompliance [Unknown]
